FAERS Safety Report 5066392-8 (Version None)
Quarter: 2006Q3

REPORT INFORMATION
  Report Type: 
  Country: None (occurrence: None)
  Receive Date: 20060801
  Receipt Date: 20051215
  Transmission Date: 20061208
  Serious: Yes (Hospitalization)
  Sender: FDA-Public Use
  Company Number: PHHO2005JP19726

PATIENT
  Age: 54 Year
  Sex: Male
  Weight: 70 kg

DRUGS (12)
  1. CHI 621 [Suspect]
     Indication: RENAL TRANSPLANT
     Dosage: 20 MG, ONCE/SINGLE
     Route: 042
     Dates: start: 20050524, end: 20050524
  2. CHI 621 [Suspect]
     Dosage: 20 MG, ONCE/SINGLE
     Route: 042
     Dates: start: 20050528, end: 20050528
  3. SOLU-MEDROL [Concomitant]
     Indication: RENAL TRANSPLANT
     Dosage: 125-625 MG
     Route: 042
     Dates: start: 20050524, end: 20050526
  4. PREDONINE [Concomitant]
     Dosage: UNK, UNK
     Route: 048
     Dates: start: 20050527
  5. PENTCILLIN [Concomitant]
     Route: 042
     Dates: start: 20050524, end: 20050530
  6. ALBUMIN [Concomitant]
     Indication: HYPOALBUMINAEMIA
     Route: 042
     Dates: start: 20050524, end: 20050530
  7. HUMULIN 70/30 [Concomitant]
     Indication: DIABETES MELLITUS
     Route: 058
     Dates: start: 20050524
  8. ZANTAC [Concomitant]
     Indication: GASTRIC ULCER
     Dates: start: 20050527, end: 20050530
  9. PROGRAF [Suspect]
     Indication: RENAL TRANSPLANT
     Dosage: 1 MG
     Route: 042
     Dates: start: 20050524, end: 20050530
  10. PROGRAF [Suspect]
     Dosage: UNK, UNK
     Route: 048
     Dates: start: 20050530
  11. CELLCEPT [Suspect]
     Indication: RENAL TRANSPLANT
     Dosage: UNK, UNK
     Route: 048
     Dates: start: 20050524, end: 20050615
  12. BREDININ [Suspect]
     Indication: RENAL TRANSPLANT
     Dosage: UNK, UNK
     Route: 048
     Dates: start: 20050615

REACTIONS (10)
  - ABDOMINAL PAIN UPPER [None]
  - ALANINE AMINOTRANSFERASE INCREASED [None]
  - ASPARTATE AMINOTRANSFERASE INCREASED [None]
  - CYTOMEGALOVIRUS ANTIGEN POSITIVE [None]
  - CYTOMEGALOVIRUS OESOPHAGITIS [None]
  - DYSPEPSIA [None]
  - HEPATITIS B [None]
  - HERPES VIRUS INFECTION [None]
  - KIDNEY TRANSPLANT REJECTION [None]
  - OESOPHAGEAL ULCER [None]
